FAERS Safety Report 5403723-0 (Version None)
Quarter: 2007Q3

REPORT INFORMATION
  Report Type: 
  Country: None (occurrence: None)
  Receive Date: 20070802
  Receipt Date: 20070723
  Transmission Date: 20080115
  Serious: Yes (Other)
  Sender: FDA-Public Use
  Company Number: JP-JNJFOC-20070705357

PATIENT
  Sex: Female

DRUGS (1)
  1. ORTHO 777-21 [Suspect]
     Indication: CONTRACEPTION

REACTIONS (2)
  - DRUG ERUPTION [None]
  - PIGMENTATION DISORDER [None]
